FAERS Safety Report 5036412-5 (Version None)
Quarter: 2006Q2

REPORT INFORMATION
  Report Type: 
  Country: None (occurrence: None)
  Receive Date: 20060601
  Receipt Date: 20060410
  Transmission Date: 20061013
  Serious: No
  Sender: FDA-Public Use
  Company Number: US200604001793

PATIENT
  Age: 31 Year
  Sex: Female

DRUGS (3)
  1. CYMBALTA [Suspect]
     Indication: OBSESSIVE-COMPULSIVE DISORDER
     Dosage: 30 MG, DAILY (1/D)
     Dates: start: 20060201, end: 20060406
  2. LOESTRIN 1.5/30 (ETHINYLESTRADIOL,NORETHISTERONE ACETATE) [Concomitant]
  3. WELLBUTRIN [Concomitant]

REACTIONS (6)
  - ANORGASMIA [None]
  - CERVIX DISORDER [None]
  - DRY MOUTH [None]
  - HYPERHIDROSIS [None]
  - METRORRHAGIA [None]
  - NAUSEA [None]
